FAERS Safety Report 25819835 (Version 1)
Quarter: 2025Q3

REPORT INFORMATION
  Report Type: Spontaneous
  Country: CN (occurrence: CN)
  Receive Date: 20250918
  Receipt Date: 20250918
  Transmission Date: 20251020
  Serious: Yes (Other)
  Sender: BEIGENE
  Company Number: CN-BEIGENE-BGN-2025-015809

PATIENT
  Age: 50 Year
  Weight: 60 kg

DRUGS (8)
  1. TISLELIZUMAB [Suspect]
     Active Substance: TISLELIZUMAB
     Indication: Hepatocellular carcinoma
  2. TISLELIZUMAB [Suspect]
     Active Substance: TISLELIZUMAB
     Route: 041
  3. TISLELIZUMAB [Suspect]
     Active Substance: TISLELIZUMAB
     Route: 041
  4. TISLELIZUMAB [Suspect]
     Active Substance: TISLELIZUMAB
  5. LENVATINIB [Suspect]
     Active Substance: LENVATINIB
     Indication: Hepatocellular carcinoma
     Dosage: 8 MILLIGRAM, QD
  6. LENVATINIB [Suspect]
     Active Substance: LENVATINIB
     Dosage: 8 MILLIGRAM, QD
     Route: 048
  7. LENVATINIB [Suspect]
     Active Substance: LENVATINIB
     Dosage: 8 MILLIGRAM, QD
     Route: 048
  8. LENVATINIB [Suspect]
     Active Substance: LENVATINIB
     Dosage: 8 MILLIGRAM, QD

REACTIONS (1)
  - Drug-induced liver injury [Recovering/Resolving]
